FAERS Safety Report 21368693 (Version 1)
Quarter: 2022Q3

REPORT INFORMATION
  Report Type: Spontaneous
  Country: None (occurrence: CN)
  Receive Date: 20220923
  Receipt Date: 20220923
  Transmission Date: 20221027
  Serious: Yes (Other)
  Sender: FDA-Public Use
  Company Number: CN-Acacia Pharma Limited-2133098

PATIENT
  Age: 73 Year
  Sex: Male

DRUGS (1)
  1. BYFAVO [Suspect]
     Active Substance: REMIMAZOLAM BESYLATE
     Indication: Sedation
     Route: 042
     Dates: start: 20220902, end: 20220902

REACTIONS (3)
  - Flushing [Unknown]
  - Heart rate increased [Recovered/Resolved]
  - Hypotension [Recovered/Resolved]

NARRATIVE: CASE EVENT DATE: 20220902
